FAERS Safety Report 9435628 (Version 1)
Quarter: 2013Q3

REPORT INFORMATION
  Report Type: Spontaneous
  Country: JP (occurrence: JP)
  Receive Date: 20130801
  Receipt Date: 20130801
  Transmission Date: 20140515
  Serious: Yes (Death, Other)
  Sender: FDA-Public Use
  Company Number: JP-BAXTER-2013BAX030120

PATIENT
  Age: 32 Month
  Sex: Female

DRUGS (16)
  1. ENDOXAN [Suspect]
     Indication: BONE MARROW CONDITIONING REGIMEN
     Route: 065
  2. ENDOXAN [Suspect]
     Indication: PROPHYLAXIS AGAINST GRAFT VERSUS HOST DISEASE
  3. FLUDARABINE [Suspect]
     Indication: BONE MARROW CONDITIONING REGIMEN
     Route: 065
  4. ANTI-THYMOCYTE GLOBULIN [Suspect]
     Indication: BONE MARROW CONDITIONING REGIMEN
     Route: 065
  5. METHOTREXATE [Suspect]
     Indication: PROPHYLAXIS AGAINST GRAFT VERSUS HOST DISEASE
     Route: 065
  6. CYCLOSPORIN A [Suspect]
     Indication: PROPHYLAXIS AGAINST GRAFT VERSUS HOST DISEASE
     Route: 065
  7. MYCOPHENOLATE MOFETIL [Suspect]
     Indication: PROPHYLAXIS AGAINST GRAFT VERSUS HOST DISEASE
     Route: 065
  8. ETOPOSIDE [Suspect]
     Indication: BONE MARROW CONDITIONING REGIMEN
     Route: 065
  9. ETOPOSIDE [Suspect]
     Indication: PROPHYLAXIS AGAINST GRAFT VERSUS HOST DISEASE
  10. TACROLIMUS [Suspect]
     Indication: PROPHYLAXIS AGAINST GRAFT VERSUS HOST DISEASE
     Route: 065
  11. TACROLIMUS [Suspect]
     Indication: BONE MARROW CONDITIONING REGIMEN
  12. PREDNISOLONE [Suspect]
     Indication: LEUKAEMIA
     Route: 065
  13. VINCRISTINE [Suspect]
     Indication: LEUKAEMIA
     Route: 065
  14. DAUNORUBICIN [Suspect]
     Indication: LEUKAEMIA
     Route: 065
  15. L-ASPARAGINASE [Suspect]
     Indication: LEUKAEMIA
     Route: 065
  16. CYTARABINE [Suspect]
     Indication: LEUKAEMIA
     Route: 065

REACTIONS (7)
  - Death [Fatal]
  - Second primary malignancy [Recovering/Resolving]
  - Chromosome analysis abnormal [Recovering/Resolving]
  - Leukaemia [Recovering/Resolving]
  - Respiratory failure [Unknown]
  - Hepatosplenomegaly [Unknown]
  - Graft versus host disease [Unknown]
